FAERS Safety Report 4588327-4 (Version None)
Quarter: 2005Q1

REPORT INFORMATION
  Report Type: 
  Country: None (occurrence: None)
  Receive Date: 20050216
  Receipt Date: 20050128
  Transmission Date: 20050727
  Serious: Yes (Other)
  Sender: FDA-Public Use
  Company Number: DSA_25812_2005

PATIENT
  Age: 49 Year
  Sex: Female

DRUGS (9)
  1. LORAZEPAM [Suspect]
     Dosage: 1 MG PO
     Route: 048
     Dates: start: 20041020, end: 20041020
  2. DEPAKENE [Suspect]
     Dosage: 1000 MG PO
     Route: 048
     Dates: start: 20041020
  3. LORAZEPAM [Suspect]
     Dosage: 12 MG IV
     Route: 042
     Dates: start: 20041013, end: 20041013
  4. LORAZEPAM [Suspect]
     Dosage: 8 MG IV
     Route: 042
     Dates: start: 20041014, end: 20041018
  5. LORAZEPAM [Suspect]
     Dosage: 2 MG PO
     Route: 048
     Dates: start: 20041019, end: 20041019
  6. LORAZEPAM [Suspect]
     Dosage: 10 MG PO
     Route: 048
     Dates: start: 20041024, end: 20041027
  7. LORAZEPAM [Suspect]
     Dosage: PO
     Route: 048
     Dates: start: 20041028, end: 20041104
  8. DEPAKENE [Suspect]
     Dosage: 2400 MG IV
     Route: 042
     Dates: start: 20041015, end: 20041018
  9. DEPAKENE [Suspect]
     Dosage: 200 MG PO
     Route: 048
     Dates: start: 20041019, end: 20041019

REACTIONS (4)
  - AMMONIA INCREASED [None]
  - DEPRESSED LEVEL OF CONSCIOUSNESS [None]
  - DRUG INTERACTION [None]
  - VOMITING [None]
